FAERS Safety Report 5965128-3 (Version None)
Quarter: 2008Q4

REPORT INFORMATION
  Report Type: 
  Country: None (occurrence: None)
  Receive Date: 20081125
  Receipt Date: 20081120
  Transmission Date: 20090506
  Serious: Yes (Death, Hospitalization)
  Sender: FDA-Public Use
  Company Number: PHEH2008US07173

PATIENT
  Sex: Male
  Weight: 76.644 kg

DRUGS (2)
  1. EXJADE [Suspect]
     Indication: IRON OVERLOAD
     Dosage: 500 MG FOR 2000 MG PO QD
     Route: 048
     Dates: start: 20080201
  2. EXJADE [Suspect]
     Indication: MYELODYSPLASTIC SYNDROME

REACTIONS (6)
  - CRANIOTOMY [None]
  - ENDOTRACHEAL INTUBATION [None]
  - FALL [None]
  - HAEMOGLOBIN DECREASED [None]
  - SUBDURAL HAEMATOMA [None]
  - SUBDURAL HAEMATOMA EVACUATION [None]
